FAERS Safety Report 26042621 (Version 1)
Quarter: 2025Q4

REPORT INFORMATION
  Report Type: Spontaneous
  Country: US (occurrence: US)
  Receive Date: 20251113
  Receipt Date: 20251113
  Transmission Date: 20260118
  Serious: Yes (Hospitalization, Other)
  Sender: FRESENIUS MEDICAL CARE
  Company Number: US-FMCRTG-FMC-2511-001761

PATIENT
  Age: 85 Year
  Sex: Male
  Weight: 83.5 kg

DRUGS (3)
  1. DELFLEX WITH DEXTROSE 1.5% LOW MAGNESIUM LOW CALCIUM [Suspect]
     Active Substance: CALCIUM CHLORIDE\DEXTROSE\MAGNESIUM CHLORIDE\SODIUM CHLORIDE\SODIUM LACTATE
     Indication: End stage renal disease
     Dosage: CA 2.5 (MEQ/L) MG 0.5 (MEQ/L), EXCHANGES 3 MIN DWELL TIME 5 HRS 0 MIN, DAYTIME FILL VOL 2000 ML, NIG
     Route: 033
  2. DELFLEX WITH DEXTROSE 2.5% LOW MAGNESIUM LOW CALCIUM [Suspect]
     Active Substance: CALCIUM CHLORIDE\DEXTROSE\MAGNESIUM CHLORIDE\SODIUM CHLORIDE\SODIUM LACTATE
     Indication: End stage renal disease
     Dosage: CA 2.5 (MEQ/L) MG 0.5 (MEQ/L), EXCHANGES 3 MIN DWELL TIME 5 HRS 0 MIN, DAYTIME FILL VOL 2000 ML, NIG
     Route: 033
  3. DELFLEX WITH DEXTROSE 4.25% LOW MAGNESIUM LOW CALCIUM [Suspect]
     Active Substance: CALCIUM CHLORIDE\DEXTROSE\MAGNESIUM CHLORIDE\SODIUM CHLORIDE\SODIUM LACTATE
     Indication: End stage renal disease
     Dosage: CA 2.5 (MEQ/L) MG 0.5 (MEQ/L), EXCHANGES 3 MIN DWELL TIME 5 HRS 0 MIN, DAYTIME FILL VOL 2000 ML, NIG
     Route: 033

REACTIONS (2)
  - Bacteraemia [Recovered/Resolved]
  - Fungal peritonitis [Recovered/Resolved]

NARRATIVE: CASE EVENT DATE: 20251027
